FAERS Safety Report 8108004-2 (Version None)
Quarter: 2012Q1

REPORT INFORMATION
  Report Type: 
  Country: None (occurrence: None)
  Receive Date: 20120202
  Receipt Date: 20120125
  Transmission Date: 20120608
  Serious: Yes (Hospitalization, Other)
  Sender: FDA-Public Use
  Company Number: US-ACTELION-A-US2011-57531

PATIENT

DRUGS (3)
  1. CALCIUM CHANNEL BLOCKERS [Concomitant]
  2. TRACLEER [Suspect]
     Indication: PULMONARY ARTERIAL HYPERTENSION
     Dosage: UNK
     Route: 048
     Dates: start: 20070316
  3. REVATIO [Concomitant]

REACTIONS (7)
  - DYSPNOEA [None]
  - SYNCOPE [None]
  - PULMONARY CONGESTION [None]
  - OXYGEN SATURATION ABNORMAL [None]
  - MALAISE [None]
  - OEDEMA PERIPHERAL [None]
  - FATIGUE [None]
